FAERS Safety Report 18544984 (Version 1)
Quarter: 2020Q4

REPORT INFORMATION
  Report Type: Spontaneous
  Country: US (occurrence: US)
  Receive Date: 20201124
  Receipt Date: 20201124
  Transmission Date: 20210114
  Serious: No
  Sender: FDA-Public Use
  Company Number: None

PATIENT
  Sex: Female

DRUGS (1)
  1. AMBRISENTAN 5MG [Suspect]
     Active Substance: AMBRISENTAN
     Route: 048

REACTIONS (5)
  - Product substitution issue [None]
  - Neck pain [None]
  - Drug ineffective [None]
  - Flatulence [None]
  - Dizziness [None]
